FAERS Safety Report 9208333 (Version 2)
Quarter: 2013Q2

REPORT INFORMATION
  Report Type: Report from Study
  Country: KR (occurrence: KR)
  Receive Date: 20130403
  Receipt Date: 20130403
  Transmission Date: 20140414
  Serious: Yes (Hospitalization)
  Sender: FDA-Public Use
  Company Number: KR-009507513-1302KOR011493

PATIENT
  Age: 69 Year
  Sex: Male
  Weight: 66.7 kg

DRUGS (33)
  1. BLINDED INSULIN [Suspect]
     Indication: TYPE 2 DIABETES MELLITUS
     Dosage: UNK
     Route: 048
     Dates: start: 20100914
  2. BLINDED METFORMIN [Suspect]
     Indication: TYPE 2 DIABETES MELLITUS
     Dosage: UNK
     Route: 048
     Dates: start: 20100914
  3. BLINDED PIOGLITAZONE HYDROCHLORIDE [Suspect]
     Indication: TYPE 2 DIABETES MELLITUS
     Dosage: UNK
     Route: 048
     Dates: start: 20100914
  4. BLINDED PLACEBO [Suspect]
     Indication: TYPE 2 DIABETES MELLITUS
     Dosage: UNK
     Route: 048
     Dates: start: 20100914
  5. BLINDED POST TRIAL THERAPY [Suspect]
     Indication: TYPE 2 DIABETES MELLITUS
     Dosage: UNK
     Route: 048
     Dates: start: 20100914
  6. BLINDED PRE TRIAL THERAPY [Suspect]
     Indication: TYPE 2 DIABETES MELLITUS
     Dosage: UNK
     Route: 048
     Dates: start: 20100914
  7. BLINDED SITAGLIPTIN PHOSPHATE [Suspect]
     Indication: TYPE 2 DIABETES MELLITUS
     Dosage: UNK
     Route: 048
     Dates: start: 20100914
  8. OMEPRAZOLE [Suspect]
     Indication: GASTRITIS PROPHYLAXIS
     Dosage: 20 MG, ONCE
     Route: 048
     Dates: start: 20120923, end: 20121016
  9. LEVOFLOXACIN [Suspect]
     Indication: TENDON RUPTURE
     Dosage: 500 MG, ONCE
     Route: 048
     Dates: start: 20121002, end: 20130123
  10. SODIUM CHLORIDE [Suspect]
     Indication: TENDON RUPTURE
     Dosage: 1000 ML, ONCE
     Route: 042
     Dates: start: 20120922, end: 20120922
  11. LEVOFLOXACIN [Suspect]
     Indication: TENDON RUPTURE
     Dosage: 500 MG, ONCE
     Route: 042
     Dates: start: 20120922, end: 20120922
  12. LEVOFLOXACIN [Suspect]
     Dosage: UNK UNK, BID
     Route: 042
     Dates: start: 20120923, end: 20121002
  13. SACCHAROMYCES [Suspect]
     Indication: GASTRITIS PROPHYLAXIS
     Dosage: UNK UNK, BID
     Route: 048
     Dates: start: 20120923, end: 20121016
  14. TRAMADOL HYDROCHLORIDE [Suspect]
     Indication: TENDON RUPTURE
     Dosage: UNK UNK, BID
     Route: 048
     Dates: start: 20120923, end: 20120929
  15. DANTROLENE SODIUM [Suspect]
     Indication: TENDON RUPTURE
     Dosage: UNK UNK, TID
     Route: 048
     Dates: start: 20120923, end: 20120929
  16. ACETAMINOPHEN [Suspect]
     Indication: TENDON RUPTURE
     Dosage: UNK UNK, BID
     Route: 048
     Dates: start: 20120923, end: 20120929
  17. ECABET SODIUM [Suspect]
     Indication: GASTRITIS PROPHYLAXIS
     Dosage: UNK, BID
     Route: 048
     Dates: start: 20120923, end: 20121016
  18. PLANTAGO SEED [Suspect]
     Indication: GASTRITIS PROPHYLAXIS
     Dosage: 6 G, ONCE
     Route: 048
     Dates: start: 20120930, end: 20120930
  19. DEXIBUPROFEN [Suspect]
     Indication: TENDON RUPTURE
     Dosage: UNK UNK, TID
     Route: 048
     Dates: start: 20120923, end: 20121016
  20. NICORANDIL [Concomitant]
     Indication: CARDIOVASCULAR EVENT PROPHYLAXIS
     Dosage: 10 MG DAILY DOSE
     Dates: start: 20080101
  21. CARVEDIL [Concomitant]
     Indication: HYPERTENSION
     Dosage: 12.5 MG DAILY DOSE
     Dates: start: 20080101
  22. ALMAGATE [Concomitant]
     Indication: GASTRITIS PROPHYLAXIS
     Dosage: 30 ML DAILY DOSE
     Dates: start: 20100302
  23. MOLSIDOMINE [Concomitant]
     Indication: CARDIOVASCULAR EVENT PROPHYLAXIS
     Dosage: 8 MG DAILI DOSE
     Dates: start: 20081007
  24. METFORMIN [Concomitant]
     Indication: DIABETES MELLITUS
     Dosage: 1000 MG TOTAL DAILY DOSE
     Dates: start: 20120410
  25. PREGABALIN [Concomitant]
     Indication: PHANTOM PAIN
     Dosage: 300 MG DAILY DOSE
     Dates: start: 20120214
  26. ASPIRIN [Concomitant]
     Indication: CARDIOVASCULAR EVENT PROPHYLAXIS
     Dosage: 100 MG
     Dates: start: 20091216
  27. PIOGLITAZONE HYDROCHLORIDE [Concomitant]
     Indication: DIABETES MELLITUS
     Dosage: 15 MG DAILY DOSE
     Dates: start: 20080918
  28. ACETAMINOPHEN [Concomitant]
     Indication: PHANTOM PAIN
     Dosage: 650 MG DAILY DOSE
     Dates: start: 20120529, end: 20130213
  29. AMITRIPTYLINE HYDROCHLORIDE [Concomitant]
     Indication: PHANTOM PAIN
     Dosage: 5 MG DAILY DOSE
     Dates: start: 20120119
  30. ALUMINUM HYDROXIDE [Concomitant]
     Indication: GASTRITIS PROPHYLAXIS
     Dosage: 300 MG DAILY DOSE
     Dates: start: 20120619
  31. TRAMADOL HYDROCHLORIDE [Concomitant]
     Indication: PHANTOM PAIN
     Dosage: 75 MG DAILY DOSE
     Dates: start: 20120529, end: 20130213
  32. ATORVASTATIN CALCIUM [Concomitant]
     Indication: HYPERLIPIDAEMIA
     Dosage: 10 MG DAILY DOSE
     Dates: start: 20101130
  33. ISOSORBIDE DINITRATE [Concomitant]
     Indication: CARDIOVASCULAR EVENT PROPHYLAXIS
     Dosage: 40 MG TOTAL DAILY DOSE
     Dates: start: 20100831

REACTIONS (1)
  - Tendon injury [Recovered/Resolved]
